FAERS Safety Report 5808862-8 (Version None)
Quarter: 2008Q3

REPORT INFORMATION
  Report Type: 
  Country: None (occurrence: None)
  Receive Date: 20080714
  Receipt Date: 20080701
  Transmission Date: 20090109
  Serious: Yes (Hospitalization, Other)
  Sender: FDA-Public Use
  Company Number: US-BAYER-200820860NA

PATIENT
  Sex: Male

DRUGS (4)
  1. BETASERON [Suspect]
     Indication: MULTIPLE SCLEROSIS
     Route: 058
     Dates: start: 19910101, end: 20070801
  2. COPAXONE [Concomitant]
     Dates: start: 20070801
  3. EFFEXOR [Concomitant]
  4. MUSCLE RELAXER [Concomitant]

REACTIONS (4)
  - BLOOD PRESSURE DECREASED [None]
  - INTESTINAL ISCHAEMIA [None]
  - MULTIPLE SCLEROSIS [None]
  - RENAL FAILURE [None]
